FAERS Safety Report 5006771-8 (Version None)
Quarter: 2006Q2

REPORT INFORMATION
  Report Type: 
  Country: None (occurrence: None)
  Receive Date: 20060519
  Receipt Date: 20060131
  Transmission Date: 20061013
  Serious: Yes (Other)
  Sender: FDA-Public Use
  Company Number: PHEH2006US01545

PATIENT
  Age: 3 Year
  Sex: Male
  Weight: 16 kg

DRUGS (1)
  1. TRILEPTAL [Suspect]
     Indication: COMPLEX PARTIAL SEIZURES
     Dosage: 10 MG/KG
     Route: 048
     Dates: start: 20060109, end: 20060124

REACTIONS (7)
  - ABDOMINAL PAIN [None]
  - AGITATION [None]
  - CONJUNCTIVITIS [None]
  - DYSURIA [None]
  - HALLUCINATION [None]
  - RASH [None]
  - URINARY RETENTION [None]
